FAERS Safety Report 14778429 (Version 3)
Quarter: 2018Q3

REPORT INFORMATION
  Report Type: Spontaneous
  Country: US (occurrence: US)
  Receive Date: 20180419
  Receipt Date: 20180710
  Transmission Date: 20181010
  Serious: Yes (Death)
  Sender: FDA-Public Use
  Company Number: US-PFIZER INC-2018147808

PATIENT
  Age: 59 Year
  Sex: Male

DRUGS (9)
  1. METHOTREXATE SODIUM. [Suspect]
     Active Substance: METHOTREXATE SODIUM
     Indication: BURKITT^S LYMPHOMA
     Dosage: UNK, CYCLIC (FINISHED CYCLE 1)
     Route: 037
     Dates: start: 201607
  2. VINCRISTINE SULFATE. [Suspect]
     Active Substance: VINCRISTINE SULFATE
     Indication: BURKITT^S LYMPHOMA
     Dosage: UNK, CYCLIC (FINISHED CYCLE 1)
     Route: 037
     Dates: start: 201607
  3. CYCLOPHOSPHAMIDE. [Suspect]
     Active Substance: CYCLOPHOSPHAMIDE
     Indication: BURKITT^S LYMPHOMA
     Dosage: UNK, CYCLIC (FINISHED CYCLE 1)
     Route: 037
     Dates: start: 201607
  4. HYDREA [Concomitant]
     Active Substance: HYDROXYUREA
     Indication: BURKITT^S LYMPHOMA
     Dosage: UNK
     Dates: start: 201607
  5. DOXORUBICIN HCL [Suspect]
     Active Substance: DOXORUBICIN HYDROCHLORIDE
     Indication: BURKITT^S LYMPHOMA
     Dosage: UNK, CYCLIC (FINISHED CYCLE 1)
     Route: 037
     Dates: start: 201607
  6. RASBURICASE [Concomitant]
     Active Substance: RASBURICASE
     Indication: BURKITT^S LYMPHOMA
     Dosage: UNK
     Dates: start: 201607
  7. ALLOPURINOL. [Concomitant]
     Active Substance: ALLOPURINOL
     Indication: BURKITT^S LYMPHOMA
     Dosage: UNK
     Dates: start: 201607
  8. CYTARABINE. [Suspect]
     Active Substance: CYTARABINE
     Indication: BURKITT^S LYMPHOMA
     Dosage: UNK, CYCLIC (FINISHED CYCLE 1)
     Route: 037
     Dates: start: 201607
  9. DEXAMETHASONE. [Suspect]
     Active Substance: DEXAMETHASONE
     Indication: BURKITT^S LYMPHOMA
     Dosage: UNK, CYCLIC (FINISHED CYCLE 1)
     Route: 037
     Dates: start: 201607

REACTIONS (3)
  - Febrile neutropenia [Fatal]
  - Sepsis [Fatal]
  - Bacteraemia [Fatal]
